FAERS Safety Report 24538607 (Version 1)
Quarter: 2024Q4

REPORT INFORMATION
  Report Type: Spontaneous
  Country: US (occurrence: US)
  Receive Date: 20241023
  Receipt Date: 20241023
  Transmission Date: 20250115
  Serious: Yes (Other)
  Sender: AUROBINDO
  Company Number: US-AUROBINDO-AUR-APL-2024-051311

PATIENT
  Age: 67 Year
  Sex: Female

DRUGS (2)
  1. METHYLPREDNISOLONE [Suspect]
     Active Substance: METHYLPREDNISOLONE
     Indication: Antisynthetase syndrome
     Dosage: 40 MILLIGRAM, TWO TIMES A DAY
     Route: 065
  2. MYCOPHENOLIC ACID [Suspect]
     Active Substance: MYCOPHENOLIC ACID
     Indication: Antisynthetase syndrome
     Dosage: 500 MILLIGRAM, TWO TIMES A DAY
     Route: 065

REACTIONS (2)
  - Gastrointestinal disorder [Unknown]
  - Drug ineffective [Unknown]
